FAERS Safety Report 23026795 (Version 2)
Quarter: 2023Q4

REPORT INFORMATION
  Report Type: Spontaneous
  Country: US (occurrence: US)
  Receive Date: 20231004
  Receipt Date: 20231013
  Transmission Date: 20240110
  Serious: No
  Sender: FDA-Public Use
  Company Number: US-SA-SAC20230927001429

PATIENT
  Age: 14 Year
  Sex: Male

DRUGS (6)
  1. DUPIXENT [Suspect]
     Active Substance: DUPILUMAB
     Indication: Dermatitis atopic
     Dosage: 1 DF, QOW
     Route: 058
     Dates: start: 20200929
  2. CLOBETASOL [Concomitant]
     Active Substance: CLOBETASOL
  3. DESONIDE [Concomitant]
     Active Substance: DESONIDE
  4. TRIAMCINOLONE [Concomitant]
     Active Substance: TRIAMCINOLONE
  5. ZYRTEC [Concomitant]
     Active Substance: CETIRIZINE HYDROCHLORIDE
  6. OLOPATADINE [Concomitant]
     Active Substance: OLOPATADINE

REACTIONS (1)
  - Therapeutic response decreased [Unknown]
